FAERS Safety Report 16343159 (Version 2)
Quarter: 2019Q2

REPORT INFORMATION
  Report Type: Report from Study
  Country: US (occurrence: US)
  Receive Date: 20190522
  Receipt Date: 20190607
  Transmission Date: 20190711
  Serious: Yes (Other)
  Sender: FDA-Public Use
  Company Number: PHEH2019US020935

PATIENT
  Age: 69 Year
  Sex: Male
  Weight: 115 kg

DRUGS (1)
  1. MEKINIST [Suspect]
     Active Substance: TRAMETINIB DIMETHYL SULFOXIDE
     Indication: HISTIOCYTIC SARCOMA
     Dosage: 2 MG, UNK
     Route: 048
     Dates: start: 20190515

REACTIONS (4)
  - Malignant neoplasm progression [Recovering/Resolving]
  - Dermatitis acneiform [Unknown]
  - Product use in unapproved indication [Unknown]
  - Histiocytic sarcoma [Recovering/Resolving]

NARRATIVE: CASE EVENT DATE: 20190530
